FAERS Safety Report 10252210 (Version 1)
Quarter: 2014Q2

REPORT INFORMATION
  Report Type: Spontaneous
  Country: RU (occurrence: RU)
  Receive Date: 20140623
  Receipt Date: 20140623
  Transmission Date: 20141212
  Serious: Yes (Other)
  Sender: FDA-Public Use
  Company Number: RU-JNJFOC-20140607978

PATIENT
  Sex: Female

DRUGS (18)
  1. DOXORUBICIN HYDROCHLORIDE [Suspect]
     Indication: NON-HODGKIN^S LYMPHOMA
     Route: 042
  2. DOXORUBICIN HYDROCHLORIDE [Suspect]
     Indication: HODGKIN^S DISEASE
     Route: 042
  3. BLEOMYCIN [Suspect]
     Indication: NON-HODGKIN^S LYMPHOMA
     Route: 065
  4. BLEOMYCIN [Suspect]
     Indication: HODGKIN^S DISEASE
     Route: 065
  5. DACARBAZINE [Suspect]
     Indication: NON-HODGKIN^S LYMPHOMA
     Route: 065
  6. DACARBAZINE [Suspect]
     Indication: HODGKIN^S DISEASE
     Route: 065
  7. VINBLASTINE [Suspect]
     Indication: NON-HODGKIN^S LYMPHOMA
     Route: 065
  8. VINBLASTINE [Suspect]
     Indication: HODGKIN^S DISEASE
     Route: 065
  9. CYCLOPHOSPHAMIDE [Suspect]
     Indication: NON-HODGKIN^S LYMPHOMA
     Route: 065
  10. CYCLOPHOSPHAMIDE [Suspect]
     Indication: HODGKIN^S DISEASE
     Route: 065
  11. PREDNISONE [Suspect]
     Indication: NON-HODGKIN^S LYMPHOMA
     Route: 065
  12. PREDNISONE [Suspect]
     Indication: HODGKIN^S DISEASE
     Route: 065
  13. VINCRISTINE [Suspect]
     Indication: NON-HODGKIN^S LYMPHOMA
     Route: 065
  14. VINCRISTINE [Suspect]
     Indication: HODGKIN^S DISEASE
     Route: 065
  15. RITUXIMAB [Suspect]
     Indication: NON-HODGKIN^S LYMPHOMA
     Route: 065
  16. RITUXIMAB [Suspect]
     Indication: HODGKIN^S DISEASE
     Route: 065
  17. ETOPOSIDE [Suspect]
     Indication: NON-HODGKIN^S LYMPHOMA
     Route: 065
  18. ETOPOSIDE [Suspect]
     Indication: HODGKIN^S DISEASE
     Route: 065

REACTIONS (8)
  - Viral infection [Unknown]
  - Pyelonephritis [Unknown]
  - Pneumonia [Unknown]
  - Thrombosis [Unknown]
  - Abortion [Recovered/Resolved]
  - Premature labour [Unknown]
  - Exposure during pregnancy [Unknown]
  - Condition aggravated [Unknown]
